FAERS Safety Report 20518041 (Version 2)
Quarter: 2024Q1

REPORT INFORMATION
  Report Type: Spontaneous
  Country: US (occurrence: None)
  Receive Date: 20220225
  Receipt Date: 20240102
  Transmission Date: 20240409
  Serious: Yes (Hospitalization, Other)
  Sender: FDA-Public Use
  Company Number: US-Unichem Pharmaceuticals (USA) Inc-UCM202202-000156

PATIENT
  Age: 17 Year
  Sex: Male

DRUGS (2)
  1. QUETIAPINE [Suspect]
     Active Substance: QUETIAPINE
     Indication: Product used for unknown indication
     Dosage: 130 MG/KG
  2. FLUVOXAMINE [Suspect]
     Active Substance: FLUVOXAMINE
     Indication: Product used for unknown indication
     Dosage: 32 MG/KG

REACTIONS (12)
  - Shock [Recovered/Resolved]
  - Multiple organ dysfunction syndrome [Unknown]
  - Respiratory acidosis [Unknown]
  - Blood lactic acid increased [Recovered/Resolved]
  - Acute kidney injury [Recovered/Resolved]
  - Chronic kidney disease [Recovering/Resolving]
  - Rhabdomyolysis [Recovered/Resolved]
  - Coma scale abnormal [Unknown]
  - Unresponsive to stimuli [Recovered/Resolved]
  - Electrocardiogram QT prolonged [Recovered/Resolved]
  - Overdose [Unknown]
  - Suicide attempt [Unknown]
